FAERS Safety Report 7732916-2 (Version None)
Quarter: 2011Q3

REPORT INFORMATION
  Report Type: 
  Country: None (occurrence: None)
  Receive Date: 20110907
  Receipt Date: 20110829
  Transmission Date: 20111222
  Serious: Yes (Other)
  Sender: FDA-Public Use
  Company Number: PHHY2011CA58077

PATIENT
  Sex: Female

DRUGS (2)
  1. ZOLEDRONOC ACID [Suspect]
     Indication: OSTEOPOROSIS
     Dosage: 5 MG/100ML
     Route: 042
     Dates: start: 20110620
  2. CALCIUM CARBONATE [Concomitant]

REACTIONS (36)
  - SLEEP DISORDER [None]
  - OEDEMA PERIPHERAL [None]
  - HEADACHE [None]
  - DIZZINESS [None]
  - BACK PAIN [None]
  - MUSCULOSKELETAL STIFFNESS [None]
  - JOINT STIFFNESS [None]
  - DEPRESSED MOOD [None]
  - ARTHRITIS [None]
  - BONE PAIN [None]
  - RED BLOOD CELL SEDIMENTATION RATE INCREASED [None]
  - FEELING ABNORMAL [None]
  - ARTHRALGIA [None]
  - PAIN IN EXTREMITY [None]
  - COUGH [None]
  - INFLUENZA LIKE ILLNESS [None]
  - MUSCULOSKELETAL CHEST PAIN [None]
  - MUSCULOSKELETAL PAIN [None]
  - EAR PAIN [None]
  - HYPOKINESIA [None]
  - SWELLING [None]
  - PAIN [None]
  - PARAESTHESIA [None]
  - CHEST DISCOMFORT [None]
  - C-REACTIVE PROTEIN INCREASED [None]
  - JOINT SWELLING [None]
  - INFLAMMATION [None]
  - MUSCULOSKELETAL DISCOMFORT [None]
  - FEELING COLD [None]
  - NECK PAIN [None]
  - DECREASED APPETITE [None]
  - ASTHENIA [None]
  - CHILLS [None]
  - FATIGUE [None]
  - NAUSEA [None]
  - PYREXIA [None]
